FAERS Safety Report 5944882-0 (Version None)
Quarter: 2008Q4

REPORT INFORMATION
  Report Type: 
  Country: None (occurrence: None)
  Receive Date: 20081107
  Receipt Date: 20081028
  Transmission Date: 20090506
  Serious: Yes (Other)
  Sender: FDA-Public Use
  Company Number: US-ALLERGAN-0808502US

PATIENT
  Sex: Female
  Weight: 65.76 kg

DRUGS (3)
  1. BOTOX [Suspect]
     Indication: HYPERHIDROSIS
     Dosage: 280 UNITS, SINGLE
     Dates: start: 20080129, end: 20080129
  2. BOTOX [Suspect]
     Dosage: 200 UNITS, SINGLE
     Dates: start: 20070910, end: 20070910
  3. BOTOX [Suspect]
     Dosage: 200 UNITS, SINGLE
     Dates: start: 20061201, end: 20061201

REACTIONS (15)
  - ABSCESS [None]
  - ANXIETY [None]
  - ARTHRALGIA [None]
  - ASTHENIA [None]
  - BALANCE DISORDER [None]
  - BREAST PAIN [None]
  - DYSARTHRIA [None]
  - FALL [None]
  - HYPOAESTHESIA [None]
  - MALAISE [None]
  - MUSCULAR WEAKNESS [None]
  - PARAESTHESIA [None]
  - SINUS HEADACHE [None]
  - UPPER RESPIRATORY TRACT INFECTION [None]
  - VAGINAL DISCHARGE [None]
